FAERS Safety Report 9078514 (Version 3)
Quarter: 2014Q3

REPORT INFORMATION
  Report Type: Spontaneous
  Country: US (occurrence: US)
  Receive Date: 20130215
  Receipt Date: 20140715
  Transmission Date: 20150326
  Serious: Yes (Hospitalization, Other)
  Sender: FDA-Public Use
  Company Number: US-009507513-1302USA006703

PATIENT
  Sex: Female
  Weight: 130.61 kg

DRUGS (5)
  1. NUVARING [Suspect]
     Active Substance: ETHINYL ESTRADIOL\ETONOGESTREL
     Indication: ENDOMETRIOSIS
     Dosage: UNK
     Route: 067
     Dates: start: 20100630
  2. NUVARING [Suspect]
     Active Substance: ETHINYL ESTRADIOL\ETONOGESTREL
     Indication: POLYCYSTIC OVARIES
  3. LISINOPRIL. [Concomitant]
     Active Substance: LISINOPRIL
     Indication: HYPERTENSION
     Dosage: 20 MG, QD
     Dates: start: 20070623, end: 20121011
  4. NUVARING [Suspect]
     Active Substance: ETHINYL ESTRADIOL\ETONOGESTREL
     Indication: MENSTRUATION IRREGULAR
     Dosage: UNK
     Route: 067
     Dates: start: 2009, end: 20090612
  5. NUVARING [Suspect]
     Active Substance: ETHINYL ESTRADIOL\ETONOGESTREL
     Indication: HYPERPROLACTINAEMIA
     Dosage: UNK
     Route: 067
     Dates: start: 20091016

REACTIONS (17)
  - Vaginal infection [Unknown]
  - Pulmonary mass [Unknown]
  - Polycystic ovaries [Unknown]
  - Chest pain [Unknown]
  - Hypotension [Unknown]
  - Deep vein thrombosis [Unknown]
  - Amenorrhoea [Unknown]
  - Diastolic dysfunction [Unknown]
  - Pulmonary embolism [Unknown]
  - Liver disorder [Unknown]
  - Back pain [Unknown]
  - Weight increased [Unknown]
  - Appendicectomy [Unknown]
  - Tricuspid valve incompetence [Unknown]
  - Thrombosis [Unknown]
  - Nephropathy [Unknown]
  - Off label use [Unknown]

NARRATIVE: CASE EVENT DATE: 2009
